FAERS Safety Report 9611588 (Version 1)
Quarter: 2013Q4

REPORT INFORMATION
  Report Type: Spontaneous
  Country: ID (occurrence: ID)
  Receive Date: 20131010
  Receipt Date: 20131010
  Transmission Date: 20140711
  Serious: Yes (Other)
  Sender: FDA-Public Use
  Company Number: PHHY2013ID111668

PATIENT
  Age: 35 Year
  Sex: Male

DRUGS (3)
  1. TASIGNA [Suspect]
     Indication: CHRONIC MYELOID LEUKAEMIA
     Dosage: 800 MG, DAILY
     Route: 048
  2. TASIGNA [Suspect]
     Dosage: 600 MG, DAILY
     Route: 048
  3. TASIGNA [Suspect]
     Dosage: 400 MG, PER DAY
     Route: 048

REACTIONS (4)
  - Thrombocytopenia [Not Recovered/Not Resolved]
  - Infection susceptibility increased [Not Recovered/Not Resolved]
  - Acne [Not Recovered/Not Resolved]
  - Thrombocytosis [Unknown]
